FAERS Safety Report 9774801 (Version 1)
Quarter: 2013Q4

REPORT INFORMATION
  Report Type: Spontaneous
  Country: US (occurrence: US)
  Receive Date: 20131220
  Receipt Date: 20131220
  Transmission Date: 20140711
  Serious: No
  Sender: FDA-Public Use
  Company Number: US-GALDERMA-US13003249

PATIENT
  Age: 68 Year
  Sex: Male

DRUGS (3)
  1. METROGEL (METRONIDAZOLE) TOPICAL GEL, 0.75% [Suspect]
     Indication: ROSACEA
     Dosage: 0.75%
     Route: 061
     Dates: start: 1989, end: 2001
  2. METROGEL (METRONIDAZOLE) TOPICAL GEL, 0.75% [Suspect]
     Dosage: 0.75 %
     Route: 061
     Dates: start: 2003
  3. DOXYCYCLINE [Concomitant]
     Indication: ROSACEA

REACTIONS (3)
  - Pain of skin [Unknown]
  - Drug ineffective [Unknown]
  - Skin burning sensation [Unknown]
